FAERS Safety Report 8742316 (Version 2)
Quarter: 2012Q4

REPORT INFORMATION
  Report Type: 
  Country: IT (occurrence: IT)
  Receive Date: 20120824
  Receipt Date: 20120829
  Transmission Date: 20130627
  Serious: Yes (Death)
  Sender: FDA-Public Use
  Company Number: IT-JNJFOC-20120810361

PATIENT
  Age: 51 Year
  Sex: Male

DRUGS (1)
  1. IBUPROFEN [Suspect]
     Indication: PRODUCT USED FOR UNKNOWN INDICATION
     Dosage: 30 tablets of 400 mg
     Route: 048

REACTIONS (11)
  - Completed suicide [Fatal]
  - Overdose [Fatal]
  - Coma [Not Recovered/Not Resolved]
  - Hypotension [Not Recovered/Not Resolved]
  - Metabolic acidosis [Not Recovered/Not Resolved]
  - Respiratory depression [Not Recovered/Not Resolved]
  - Brain oedema [None]
  - Pulmonary oedema [None]
  - Pulmonary congestion [None]
  - Hepatic congestion [None]
  - Renal venous congestion [None]
